FAERS Safety Report 22103873 (Version 2)
Quarter: 2023Q2

REPORT INFORMATION
  Report Type: Report from Study
  Country: CA (occurrence: CA)
  Receive Date: 20230316
  Receipt Date: 20230404
  Transmission Date: 20230721
  Serious: Yes (Hospitalization)
  Sender: FDA-Public Use
  Company Number: CA-002147023-NVSC2023CA055871

PATIENT
  Age: 27 Year
  Sex: Female

DRUGS (8)
  1. MONTELUKAST [Suspect]
     Active Substance: MONTELUKAST SODIUM
     Indication: Chronic spontaneous urticaria
     Dosage: 1 DOSAGE FORM, QD
     Route: 048
     Dates: start: 202104, end: 202108
  2. BILASTINE [Concomitant]
     Active Substance: BILASTINE
     Indication: Chronic spontaneous urticaria
     Dosage: 1 DOSAGE FORM, PRN (BLEXTEN)
     Route: 048
     Dates: start: 20210603
  3. FLOVENT [Concomitant]
     Active Substance: FLUTICASONE PROPIONATE
     Indication: Chronic spontaneous urticaria
     Dosage: 1 DOSAGE FORM, QD
     Dates: start: 202211, end: 202301
  4. ALVESCO [Concomitant]
     Active Substance: CICLESONIDE
     Indication: Chronic spontaneous urticaria
     Dosage: 2 DOSAGE FORM, BID
     Dates: start: 20230306
  5. FLUTICASONE FUROATE [Concomitant]
     Active Substance: FLUTICASONE FUROATE
     Indication: Chronic spontaneous urticaria
     Dosage: 2 DOSAGE FORM, QD
     Route: 045
     Dates: start: 202104
  6. BENADRYL [Concomitant]
     Active Substance: DIPHENHYDRAMINE HYDROCHLORIDE
     Indication: Chronic spontaneous urticaria
     Dosage: 1 DOSAGE FORM, PRN
     Route: 048
     Dates: start: 20210603
  7. RUPATADINE FUMARATE [Concomitant]
     Active Substance: RUPATADINE FUMARATE
     Indication: Chronic spontaneous urticaria
     Dosage: 1 DOSAGE FORM, QID
     Route: 048
     Dates: start: 20210803
  8. ALBUTEROL [Concomitant]
     Active Substance: ALBUTEROL
     Indication: Asthma
     Dosage: 1 DOSAGE FORM, PRN
     Dates: start: 2021

REACTIONS (9)
  - Anaphylactic reaction [Unknown]
  - Urticaria [Recovering/Resolving]
  - Pruritus [Unknown]
  - Face oedema [Unknown]
  - Eye swelling [Unknown]
  - Swollen tongue [Unknown]
  - Lip swelling [Unknown]
  - Pharyngeal swelling [Unknown]
  - Product use in unapproved indication [Unknown]
